FAERS Safety Report 14356579 (Version 1)
Quarter: 2018Q1

REPORT INFORMATION
  Report Type: Spontaneous
  Country: US (occurrence: US)
  Receive Date: 20180104
  Receipt Date: 20180104
  Transmission Date: 20180509
  Serious: Yes (Hospitalization)
  Sender: FDA-Public Use
  Company Number: None

PATIENT
  Age: 60 Year
  Sex: Male

DRUGS (4)
  1. DANAZOL. [Concomitant]
     Active Substance: DANAZOL
  2. TESTOST ENAN [Concomitant]
  3. EXJADE [Suspect]
     Active Substance: DEFERASIROX
     Indication: MYELODYSPLASTIC SYNDROME
     Route: 048
     Dates: start: 20171027
  4. EXJADE [Suspect]
     Active Substance: DEFERASIROX
     Route: 048

REACTIONS (1)
  - Diarrhoea [None]
